FAERS Safety Report 15196946 (Version 2)
Quarter: 2018Q4

REPORT INFORMATION
  Report Type: Not Available
  Country: US (occurrence: US)
  Receive Date: 20180725
  Receipt Date: 20181019
  Transmission Date: 20190204
  Serious: No
  Sender: FDA-Public Use
  Company Number: US-NEUROCRINE BIOSCIENCES INC.-2018NBI02167

PATIENT
  Age: 53 Year
  Sex: Female
  Weight: 83.54 kg

DRUGS (4)
  1. INGREZZA [Suspect]
     Active Substance: VALBENAZINE
     Indication: TARDIVE DYSKINESIA
     Dosage: AT NIGHT
     Route: 048
     Dates: start: 20180116, end: 2018
  2. INGREZZA [Suspect]
     Active Substance: VALBENAZINE
     Route: 048
     Dates: start: 2018, end: 2018
  3. ZOLOFT [Concomitant]
     Active Substance: SERTRALINE HYDROCHLORIDE
     Indication: DEPRESSION
  4. INGREZZA [Suspect]
     Active Substance: VALBENAZINE
     Dosage: 10 TO 20 MG
     Route: 048
     Dates: start: 2018

REACTIONS (3)
  - Anxiety [Recovered/Resolved]
  - Hyperventilation [Recovered/Resolved]
  - Palpitations [Recovered/Resolved]

NARRATIVE: CASE EVENT DATE: 20180205
